FAERS Safety Report 10732032 (Version 1)
Quarter: 2015Q1

REPORT INFORMATION
  Report Type: Spontaneous
  Country: US (occurrence: None)
  Receive Date: 20150121
  Receipt Date: 20150121
  Transmission Date: 20150721
  Serious: No
  Sender: FDA-Public Use
  Company Number: None

PATIENT
  Age: 45 Year
  Sex: Male
  Weight: 74.84 kg

DRUGS (1)
  1. LEVEMIR [Suspect]
     Active Substance: INSULIN DETEMIR
     Indication: DIABETES MELLITUS MANAGEMENT
     Dosage: 18 UNITS ONCE DAILY, GIVEN INTO/UNDER SKIN
     Dates: start: 20141101, end: 20150120

REACTIONS (2)
  - Blood glucose increased [None]
  - Product quality issue [None]
